FAERS Safety Report 6394901-5 (Version None)
Quarter: 2009Q4

REPORT INFORMATION
  Report Type: 
  Country: None (occurrence: None)
  Receive Date: 20091009
  Receipt Date: 20091003
  Transmission Date: 20100525
  Serious: No
  Sender: FDA-Public Use
  Company Number: US-AVENTIS-200918869US

PATIENT
  Sex: Female

DRUGS (4)
  1. APIDRA [Suspect]
     Dosage: DOSE: UNK
     Route: 051
     Dates: start: 20090901, end: 20090901
  2. APIDRA [Suspect]
     Dosage: DOSE: SLIDING SCALE
     Route: 051
     Dates: start: 20060101
  3. LANTUS [Suspect]
     Dosage: DOSE: 18-20
     Route: 058
     Dates: start: 20060101
  4. OPTICLIK (INSULIN INJECTION PEN) [Suspect]
     Dates: start: 20060101

REACTIONS (1)
  - WRONG DRUG ADMINISTERED [None]
